FAERS Safety Report 8820447 (Version 4)
Quarter: 2012Q4

REPORT INFORMATION
  Report Type: 
  Country: US (occurrence: US)
  Receive Date: 20121002
  Receipt Date: 20121113
  Transmission Date: 20130627
  Serious: No
  Sender: FDA-Public Use
  Company Number: US-BAYER-2012-101653

PATIENT
  Age: 21 Year
  Sex: Female

DRUGS (1)
  1. GADAVIST [Suspect]
     Indication: NUCLEAR MAGNETIC RESONANCE IMAGING ABDOMINAL
     Dosage: 6 ml, ONCE
     Dates: start: 20120921, end: 20120921

REACTIONS (5)
  - Vomiting [None]
  - Swelling [None]
  - Retching [None]
  - Pruritus [None]
  - Nausea [None]
